FAERS Safety Report 4345828-1 (Version None)
Quarter: 2004Q2

REPORT INFORMATION
  Report Type: 
  Country: None (occurrence: None)
  Receive Date: 20040424
  Receipt Date: 20030611
  Transmission Date: 20050107
  Serious: Yes (Hospitalization, Disabling, Other)
  Sender: FDA-Public Use
  Company Number: US-MERCK-0306USA01432

PATIENT
  Age: 51 Year
  Sex: Female
  Weight: 83 kg

DRUGS (11)
  1. LORCET 10/650 [Concomitant]
     Route: 065
  2. ALBUTEROL [Concomitant]
     Route: 055
  3. LIPITOR [Concomitant]
     Indication: HYPERCHOLESTEROLAEMIA
     Route: 065
  4. PREMPRO [Concomitant]
     Route: 065
  5. TRICOR [Concomitant]
     Route: 048
  6. IBUPROFEN [Concomitant]
     Indication: ARTHRITIS
     Route: 065
  7. IBUPROFEN [Concomitant]
     Route: 065
  8. DILANTIN [Concomitant]
     Route: 048
     Dates: start: 19720101
  9. VIOXX [Suspect]
     Indication: OSTEOARTHRITIS
     Route: 048
     Dates: start: 20010707
  10. VIOXX [Suspect]
     Route: 048
     Dates: end: 20020630
  11. DETROL [Concomitant]
     Route: 065

REACTIONS (32)
  - ACUTE MYOCARDIAL INFARCTION [None]
  - ANGINA PECTORIS [None]
  - ANHEDONIA [None]
  - ARTHRITIS [None]
  - BLOOD DISORDER [None]
  - BRONCHITIS ACUTE [None]
  - BRONCHITIS ACUTE VIRAL [None]
  - CARDIAC VALVE DISEASE [None]
  - CHOLECYSTITIS [None]
  - CHOLELITHIASIS [None]
  - CONVULSION [None]
  - CORONARY ARTERY DISEASE [None]
  - CORONARY ARTERY OCCLUSION [None]
  - DRUG LEVEL BELOW THERAPEUTIC [None]
  - EAR INFECTION [None]
  - EJECTION FRACTION DECREASED [None]
  - EPIGASTRIC DISCOMFORT [None]
  - FIBULA FRACTURE [None]
  - GASTROOESOPHAGEAL REFLUX DISEASE [None]
  - HALLUCINATION, AUDITORY [None]
  - MAJOR DEPRESSION [None]
  - OSTEOARTHRITIS [None]
  - PAIN IN EXTREMITY [None]
  - POLYTRAUMATISM [None]
  - ROAD TRAFFIC ACCIDENT [None]
  - SINUS BRADYCARDIA [None]
  - SLEEP DISORDER [None]
  - SUICIDAL IDEATION [None]
  - TREATMENT NONCOMPLIANCE [None]
  - UPPER RESPIRATORY TRACT INFECTION [None]
  - URGE INCONTINENCE [None]
  - URINARY INCONTINENCE [None]
